FAERS Safety Report 16834661 (Version 2)
Quarter: 2019Q4

REPORT INFORMATION
  Report Type: Spontaneous
  Country: US (occurrence: US)
  Receive Date: 20190920
  Receipt Date: 20191017
  Transmission Date: 20200122
  Serious: No
  Sender: FDA-Public Use
  Company Number: US-GLAXOSMITHKLINE-US2019166342

PATIENT
  Age: 56 Year
  Sex: Female

DRUGS (1)
  1. VENTOLIN HFA [Suspect]
     Active Substance: ALBUTEROL SULFATE
     Indication: ASTHMA
     Dosage: 2 PUFF(S), PRN
     Route: 055

REACTIONS (9)
  - Drug ineffective [Unknown]
  - Somnolence [Unknown]
  - Product complaint [Unknown]
  - Prescription drug used without a prescription [Unknown]
  - Wheezing [Unknown]
  - Malaise [Unknown]
  - Product dose omission [Unknown]
  - Wrong technique in device usage process [Unknown]
  - Wrong technique in product usage process [Unknown]

NARRATIVE: CASE EVENT DATE: 201909
